FAERS Safety Report 8288640-3 (Version None)
Quarter: 2012Q2

REPORT INFORMATION
  Report Type: 
  Country: None (occurrence: None)
  Receive Date: 20120416
  Receipt Date: 20120326
  Transmission Date: 20120825
  Serious: Yes (Hospitalization)
  Sender: FDA-Public Use
  Company Number: PT-BAXTER-2012BAX000037

PATIENT
  Sex: Female

DRUGS (3)
  1. EXTRANEAL [Suspect]
     Route: 033
     Dates: start: 20110728, end: 20120305
  2. PHYSIONEAL 40 GLUCOSE 2,27% P/V/ 22,7 MG/ML CLEAR-FLEX [Suspect]
     Route: 033
     Dates: start: 20110728, end: 20120305
  3. EXTRANEAL [Suspect]
     Route: 033
     Dates: start: 20110728, end: 20120305

REACTIONS (2)
  - PERITONITIS BACTERIAL [None]
  - PERITONEAL DIALYSIS COMPLICATION [None]
